FAERS Safety Report 7902608-5 (Version None)
Quarter: 2011Q4

REPORT INFORMATION
  Report Type: 
  Country: None (occurrence: None)
  Receive Date: 20111108
  Receipt Date: 20111025
  Transmission Date: 20120403
  Serious: Yes (Hospitalization)
  Sender: FDA-Public Use
  Company Number: JP-ROCHE-1008231

PATIENT
  Sex: Female

DRUGS (16)
  1. CARVEDILOL [Concomitant]
     Route: 048
  2. NEUROVITAN (UKRAINE) [Concomitant]
     Route: 048
  3. RISEDRONATE SODIUM [Concomitant]
     Route: 048
  4. PREDNISOLONE [Concomitant]
     Indication: RHEUMATOID ARTHRITIS
     Route: 048
  5. OPALMON [Concomitant]
     Indication: LUMBAR SPINAL STENOSIS
     Route: 048
  6. ISONIAZID [Concomitant]
     Indication: ANTIBIOTIC PROPHYLAXIS
     Route: 048
  7. ALFAROL [Concomitant]
     Indication: OSTEOPOROSIS
     Route: 048
  8. ACTEMRA [Suspect]
     Indication: RHEUMATOID ARTHRITIS
     Route: 058
     Dates: start: 20110314
  9. MUCOSTA [Concomitant]
     Route: 048
  10. ACTEMRA [Suspect]
     Route: 042
     Dates: start: 20100927
  11. FAMOTIDINE [Concomitant]
     Indication: GASTRITIS PROPHYLAXIS
     Route: 048
  12. CONIEL [Concomitant]
     Route: 048
  13. DOXAZOSIN MESYLATE [Concomitant]
     Indication: HYPERTENSION
     Route: 048
     Dates: start: 20110314
  14. OLMESARTAN MEDOXOMIL [Concomitant]
     Route: 048
  15. NEUROTROPIN [Concomitant]
     Indication: LUMBAR SPINAL STENOSIS
     Route: 048
  16. LOXONIN [Concomitant]
     Route: 048

REACTIONS (1)
  - COLONIC POLYP [None]
